FAERS Safety Report 10511823 (Version 2)
Quarter: 2015Q2

REPORT INFORMATION
  Report Type: Spontaneous
  Country: US (occurrence: US)
  Receive Date: 20141010
  Receipt Date: 20150528
  Transmission Date: 20150821
  Serious: Yes (Hospitalization, Other)
  Sender: FDA-Public Use
  Company Number: US-BAYER-2014-149929

PATIENT
  Age: 10 Year
  Sex: Female

DRUGS (1)
  1. MAGNEVIST [Suspect]
     Active Substance: GADOPENTETATE DIMEGLUMINE
     Indication: NUCLEAR MAGNETIC RESONANCE IMAGING
     Dosage: UNK, ONCE
     Dates: start: 20141001, end: 20141001

REACTIONS (11)
  - Blood pressure increased [None]
  - Eye swelling [None]
  - Peripheral swelling [None]
  - Flushing [None]
  - Peripheral coldness [None]
  - Hypoaesthesia [None]
  - Vision blurred [None]
  - Feeling cold [None]
  - Skin discolouration [None]
  - Headache [None]
  - Eye inflammation [None]

NARRATIVE: CASE EVENT DATE: 20141001
